FAERS Safety Report 11112827 (Version 1)
Quarter: 2015Q2

REPORT INFORMATION
  Report Type: Spontaneous
  Country: RU (occurrence: RU)
  Receive Date: 20150514
  Receipt Date: 20150514
  Transmission Date: 20150821
  Serious: Yes (Other)
  Sender: FDA-Public Use
  Company Number: RU-INCYTE CORPORATION-2015IN002081

PATIENT
  Age: 65 Year
  Sex: Female
  Weight: 101 kg

DRUGS (1)
  1. JAKAFI [Suspect]
     Active Substance: RUXOLITINIB
     Indication: MYELOFIBROSIS
     Dosage: 30 MG, PER DAY
     Route: 048
     Dates: start: 20130613

REACTIONS (3)
  - Coagulopathy [Not Recovered/Not Resolved]
  - Hepatitis toxic [Not Recovered/Not Resolved]
  - Weight increased [Not Recovered/Not Resolved]

NARRATIVE: CASE EVENT DATE: 20130718
